FAERS Safety Report 22639899 (Version 10)
Quarter: 2024Q1

REPORT INFORMATION
  Report Type: Spontaneous
  Country: US (occurrence: US)
  Receive Date: 20230626
  Receipt Date: 20240202
  Transmission Date: 20240409
  Serious: No
  Sender: FDA-Public Use
  Company Number: US-PFIZER INC-202300228377

PATIENT
  Age: 16 Year
  Sex: Male
  Weight: 54.43 kg

DRUGS (2)
  1. GENOTROPIN [Suspect]
     Active Substance: SOMATROPIN
     Indication: Growth hormone deficiency
     Dosage: 3 MG, 2X/WEEK
  2. GABAPENTIN [Concomitant]
     Active Substance: GABAPENTIN
     Indication: Neurogenic bowel
     Dosage: 300 MG, 3X/DAY
     Route: 048
     Dates: start: 2017

REACTIONS (3)
  - Device issue [Unknown]
  - Device mechanical issue [Unknown]
  - Device breakage [Unknown]
